FAERS Safety Report 11088424 (Version 2)
Quarter: 2015Q2

REPORT INFORMATION
  Report Type: Spontaneous
  Country: US (occurrence: US)
  Receive Date: 20150504
  Receipt Date: 20150528
  Transmission Date: 20150821
  Serious: Yes (Other)
  Sender: FDA-Public Use
  Company Number: US-PURDUE-USA-2015-0123133

PATIENT
  Age: 82 Year
  Sex: Female
  Weight: 72.56 kg

DRUGS (3)
  1. COLACE [Suspect]
     Active Substance: DOCUSATE SODIUM
     Indication: CONSTIPATION
     Dosage: 100 MG, DAILY
     Route: 048
  2. COLACE [Suspect]
     Active Substance: DOCUSATE SODIUM
     Dosage: 100 MG, DAILY
     Route: 048
  3. COLACE [Suspect]
     Active Substance: DOCUSATE SODIUM
     Dosage: 2 TABLET, UNK
     Route: 048

REACTIONS (4)
  - Hallucination [Not Recovered/Not Resolved]
  - Anger [Not Recovered/Not Resolved]
  - Amnesia [Not Recovered/Not Resolved]
  - Allergy to metals [Recovered/Resolved]

NARRATIVE: CASE EVENT DATE: 20150301
